FAERS Safety Report 6093304-0 (Version None)
Quarter: 2009Q1

REPORT INFORMATION
  Report Type: 
  Country: None (occurrence: None)
  Receive Date: 20090224
  Receipt Date: 20090224
  Transmission Date: 20090719
  Serious: Yes (Hospitalization)
  Sender: FDA-Public Use
  Company Number: None

PATIENT
  Sex: Female
  Weight: 70.7611 kg

DRUGS (3)
  1. ADRIAMYCIN PFS [Suspect]
     Indication: BREAST CANCER
     Dosage: 60 MG/M2 Q2WKS IV
     Route: 042
     Dates: start: 20090127, end: 20090210
  2. CYTOXAN [Suspect]
     Indication: BREAST CANCER
     Dosage: 600 MG/M2 Q2WKS IV
     Route: 042
     Dates: start: 20090127, end: 20090210
  3. AVASTIN [Suspect]
     Indication: BREAST CANCER
     Dosage: 10MG/KG Q2WKS IV
     Route: 042
     Dates: start: 20090127, end: 20090210

REACTIONS (12)
  - ASTHENIA [None]
  - CHEILITIS [None]
  - CHILLS [None]
  - CONSTIPATION [None]
  - DECREASED APPETITE [None]
  - DIARRHOEA [None]
  - FEBRILE NEUTROPENIA [None]
  - HAEMOGLOBIN DECREASED [None]
  - HAEMORRHOIDS [None]
  - MUCOSAL INFLAMMATION [None]
  - PROCTALGIA [None]
  - STOMATITIS [None]
